FAERS Safety Report 18214811 (Version 4)
Quarter: 2020Q4

REPORT INFORMATION
  Report Type: Spontaneous
  Country: US (occurrence: US)
  Receive Date: 20200831
  Receipt Date: 20201106
  Transmission Date: 20210113
  Serious: Yes (Death, Other)
  Sender: FDA-Public Use
  Company Number: US-009507513-2008USA013500

PATIENT
  Sex: Female
  Weight: 53.06 kg

DRUGS (4)
  1. GLYBURIDE (+) METFORMIN HYDROCHLORIDE [Concomitant]
     Active Substance: GLYBURIDE\METFORMIN HYDROCHLORIDE
     Indication: TYPE 2 DIABETES MELLITUS
     Dosage: 2 (5/500 MG) TABLET, BID
     Route: 048
     Dates: start: 20171020, end: 20191231
  2. JANUVIA [Suspect]
     Active Substance: SITAGLIPTIN PHOSPHATE
     Indication: TYPE 2 DIABETES MELLITUS
     Dosage: 50 MG, ONCE DAILY
     Route: 048
     Dates: start: 20190214, end: 20190928
  3. IRINOTECAN [Suspect]
     Active Substance: IRINOTECAN
     Dosage: 125 MILLIGRAM/ METER SQUARED AT 190 MG
     Route: 042
     Dates: start: 2019, end: 2019
  4. LOVASTATIN. [Concomitant]
     Active Substance: LOVASTATIN
     Indication: BLOOD CHOLESTEROL INCREASED
     Dosage: 20 MG, DAILY
     Route: 048
     Dates: start: 20171223, end: 20190727

REACTIONS (30)
  - Metastases to liver [Unknown]
  - Cholelithiasis [Unknown]
  - Gallbladder polyp [Unknown]
  - Blood bilirubin increased [Unknown]
  - Depression [Unknown]
  - Death [Fatal]
  - Cancer pain [Unknown]
  - Lymphangiosis carcinomatosa [Unknown]
  - Computerised tomogram abdomen abnormal [Unknown]
  - Haematocrit decreased [Unknown]
  - Gastrointestinal pain [Recovered/Resolved]
  - Pancreatic carcinoma metastatic [Fatal]
  - Metastases to peritoneum [Unknown]
  - Bone marrow disorder [Unknown]
  - Arteriosclerosis [Unknown]
  - Tooth extraction [Unknown]
  - Metastases to lung [Unknown]
  - Acute respiratory failure [Fatal]
  - Intervertebral disc degeneration [Unknown]
  - Lymphadenopathy [Unknown]
  - Gallbladder enlargement [Unknown]
  - Metastases to bone [Unknown]
  - Emphysema [Unknown]
  - Aortic arteriosclerosis [Unknown]
  - Haemoglobin decreased [Unknown]
  - Heart rate increased [Unknown]
  - Cardio-respiratory arrest [Fatal]
  - Sleep disorder [Unknown]
  - Hepatic steatosis [Unknown]
  - Constipation [Unknown]

NARRATIVE: CASE EVENT DATE: 2019
